FAERS Safety Report 21958767 (Version 1)
Quarter: 2023Q1

REPORT INFORMATION
  Report Type: Spontaneous
  Country: US (occurrence: US)
  Receive Date: 20230206
  Receipt Date: 20230206
  Transmission Date: 20230417
  Serious: No
  Sender: FDA-Public Use
  Company Number: US-PFIZER INC-2020306156

PATIENT
  Age: 73 Year
  Sex: Female
  Weight: 97.52 kg

DRUGS (1)
  1. IBRANCE [Suspect]
     Active Substance: PALBOCICLIB
     Indication: Breast cancer metastatic
     Dosage: 125 MG, CYCLIC (125 MG TABLETS ONCE A DAY BY MOUTH FOR 21 DAYS)
     Route: 048
     Dates: start: 2020

REACTIONS (1)
  - Dysphagia [Unknown]
